FAERS Safety Report 13722097 (Version 1)
Quarter: 2017Q3

REPORT INFORMATION
  Report Type: Spontaneous
  Country: US (occurrence: US)
  Receive Date: 20170706
  Receipt Date: 20170706
  Transmission Date: 20171127
  Serious: No
  Sender: FDA-Public Use
  Company Number: US-PFIZER INC-2017284425

PATIENT
  Sex: Female

DRUGS (1)
  1. METHOTREXATE SODIUM. [Suspect]
     Active Substance: METHOTREXATE SODIUM
     Dosage: UNK

REACTIONS (17)
  - Anti-cyclic citrullinated peptide antibody positive [Unknown]
  - Pain in extremity [Unknown]
  - C-reactive protein increased [Unknown]
  - Limb discomfort [Unknown]
  - Blood glucose increased [Unknown]
  - Joint swelling [Unknown]
  - Musculoskeletal discomfort [Unknown]
  - Musculoskeletal pain [Unknown]
  - Chondropathy [Unknown]
  - Aspartate aminotransferase increased [Unknown]
  - Rheumatoid factor increased [Unknown]
  - Joint warmth [Unknown]
  - Synovitis [Unknown]
  - Blood urea nitrogen/creatinine ratio increased [Unknown]
  - Nausea [Unknown]
  - Arthralgia [Unknown]
  - Bone erosion [Unknown]
